FAERS Safety Report 16187352 (Version 27)
Quarter: 2021Q3

REPORT INFORMATION
  Report Type: Spontaneous
  Country: CA (occurrence: CA)
  Receive Date: 20190412
  Receipt Date: 20210814
  Transmission Date: 20211014
  Serious: Yes (Hospitalization, Other)
  Sender: FDA-Public Use
  Company Number: CA-CELLTRION INC.-2019CA019990

PATIENT

DRUGS (32)
  1. INFLECTRA [Suspect]
     Active Substance: INFLIXIMAB-DYYB
     Dosage: 600 MG (10 MG/KG), EVERY 4 WEEKS
     Route: 042
     Dates: start: 20190708
  2. INFLECTRA [Suspect]
     Active Substance: INFLIXIMAB-DYYB
     Dosage: 600 MG (10 MG/KG), EVERY 4 WEEKS
     Route: 042
     Dates: start: 20200124
  3. INFLECTRA [Suspect]
     Active Substance: INFLIXIMAB-DYYB
     Dosage: 600 MG (10 MG/KG), EVERY 4 WEEKS
     Route: 042
     Dates: start: 20210129
  4. INFLECTRA [Suspect]
     Active Substance: INFLIXIMAB-DYYB
     Dosage: 600 MG (10 MG/KG), EVERY 4 WEEKS
     Route: 042
     Dates: start: 20190809
  5. INFLECTRA [Suspect]
     Active Substance: INFLIXIMAB-DYYB
     Dosage: 600 MG (10 MG/KG), EVERY 4 WEEKS
     Route: 042
     Dates: start: 20210102
  6. INFLECTRA [Suspect]
     Active Substance: INFLIXIMAB-DYYB
     Dosage: 600 MG (10 MG/KG), EVERY 4 WEEKS
     Route: 042
     Dates: start: 20210224
  7. ENTYVIO [Concomitant]
     Active Substance: VEDOLIZUMAB
     Dosage: UNK, MONTHLY
  8. METHOTREXATE. [Concomitant]
     Active Substance: METHOTREXATE
     Dosage: 20 MG, WEEKLY
     Route: 048
  9. INFLECTRA [Suspect]
     Active Substance: INFLIXIMAB-DYYB
     Dosage: 400 MG, EVERY 4 WEEKS
     Route: 042
     Dates: start: 20190406
  10. INFLECTRA [Suspect]
     Active Substance: INFLIXIMAB-DYYB
     Dosage: 600 MG (10 MG/KG), EVERY 4 WEEKS
     Route: 042
     Dates: start: 20210423
  11. INFLECTRA [Suspect]
     Active Substance: INFLIXIMAB-DYYB
     Dosage: 300 MG, AT 0, 2, 6, THEN EVERY 8 WEEKS (WEEK 6 DOSE)
     Route: 042
     Dates: start: 20190116
  12. INFLECTRA [Suspect]
     Active Substance: INFLIXIMAB-DYYB
     Dosage: 600 MG (10 MG/KG), EVERY 4 WEEKS
     Route: 042
     Dates: start: 20190905, end: 20190905
  13. INFLECTRA [Suspect]
     Active Substance: INFLIXIMAB-DYYB
     Dosage: 600 MG (10 MG/KG), EVERY 4 WEEKS
     Route: 042
     Dates: start: 20201106
  14. INFLECTRA [Suspect]
     Active Substance: INFLIXIMAB-DYYB
     Dosage: 600 MG (10 MG/KG), EVERY 4 WEEKS
     Route: 042
     Dates: start: 20210326
  15. INFLECTRA [Suspect]
     Active Substance: INFLIXIMAB-DYYB
     Indication: COLITIS ULCERATIVE
     Dosage: 300 MG, AT 0, 2, 6, THEN EVERY 8 WEEKS (WEEK 0 DOSE)
     Route: 042
     Dates: start: 20181205
  16. INFLECTRA [Suspect]
     Active Substance: INFLIXIMAB-DYYB
     Dosage: 300 MG, AT 0, 2, 6, THEN EVERY 8 WEEKS (WEEK 2 DOSE)
     Route: 042
     Dates: start: 20181220
  17. INFLECTRA [Suspect]
     Active Substance: INFLIXIMAB-DYYB
     Dosage: 10 MG/KG (OR 500 MG ROUNDED UP DOSE), EVERY 4 WEEKS
     Route: 042
     Dates: start: 20190514
  18. INFLECTRA [Suspect]
     Active Substance: INFLIXIMAB-DYYB
     Dosage: 600 MG (10 MG/KG), EVERY 4 WEEKS
     Route: 042
     Dates: start: 20201008
  19. AZATHIOPRINE. [Concomitant]
     Active Substance: AZATHIOPRINE
     Dosage: 375 MG, DAILY
     Route: 048
  20. FOLIC ACID. [Concomitant]
     Active Substance: FOLIC ACID
     Dosage: 1000 UG, ONCE DAILY
     Route: 048
  21. INFLECTRA [Suspect]
     Active Substance: INFLIXIMAB-DYYB
     Dosage: 600 MG (10 MG/KG), EVERY 4 WEEKS
     Route: 042
     Dates: start: 20200814
  22. INFLECTRA [Suspect]
     Active Substance: INFLIXIMAB-DYYB
     Dosage: 10 MG/KG (OR 500 MG ROUNDED UP DOSE), EVERY 4 WEEKS
     Route: 042
     Dates: start: 20190610
  23. INFLECTRA [Suspect]
     Active Substance: INFLIXIMAB-DYYB
     Dosage: 600 MG (10 MG/KG), EVERY 4 WEEKS
     Route: 042
     Dates: start: 20200709, end: 20200709
  24. INFLECTRA [Suspect]
     Active Substance: INFLIXIMAB-DYYB
     Dosage: 600 MG (10 MG/KG), EVERY 4 WEEKS
     Route: 042
     Dates: start: 20200911
  25. INFLECTRA [Suspect]
     Active Substance: INFLIXIMAB-DYYB
     Dosage: 600 MG (10 MG/KG), EVERY 4 WEEKS
     Route: 042
     Dates: start: 20201204
  26. INFLECTRA [Suspect]
     Active Substance: INFLIXIMAB-DYYB
     Dosage: 600 MG (10 MG/KG), EVERY 4 WEEKS
     Route: 042
     Dates: start: 20210521, end: 20210521
  27. VEDOLIZUMAB [Concomitant]
     Active Substance: VEDOLIZUMAB
     Dosage: UNK
  28. INFLECTRA [Suspect]
     Active Substance: INFLIXIMAB-DYYB
     Dosage: 300 MG, AT 0, 2, 6, THEN EVERY 8 WEEKS
     Route: 042
     Dates: start: 20190313, end: 20190313
  29. INFLECTRA [Suspect]
     Active Substance: INFLIXIMAB-DYYB
     Dosage: 10 MG/KG (OR 500 MG ROUNDED UP DOSE), EVERY 4 WEEKS
     Route: 042
     Dates: start: 20190412, end: 20190412
  30. INFLECTRA [Suspect]
     Active Substance: INFLIXIMAB-DYYB
     Dosage: 600 MG (10 MG/KG), EVERY 4 WEEKS
     Route: 042
     Dates: start: 20190809
  31. INFLECTRA [Suspect]
     Active Substance: INFLIXIMAB-DYYB
     Dosage: 600 MG (10 MG/KG), EVERY 4 WEEKS
     Route: 042
     Dates: start: 20200222
  32. AZATHIOPRINE. [Concomitant]
     Active Substance: AZATHIOPRINE
     Dosage: 150 MG, (2.5 TABS) 1X/DAY
     Route: 048

REACTIONS (9)
  - Heart rate increased [Unknown]
  - Drug level below therapeutic [Not Recovered/Not Resolved]
  - Loss of personal independence in daily activities [Unknown]
  - Off label use [Unknown]
  - Condition aggravated [Not Recovered/Not Resolved]
  - Drug ineffective [Unknown]
  - Poor quality sleep [Unknown]
  - Colitis ulcerative [Unknown]
  - Weight increased [Not Recovered/Not Resolved]

NARRATIVE: CASE EVENT DATE: 20190313
